FAERS Safety Report 10218891 (Version 5)
Quarter: 2014Q3

REPORT INFORMATION
  Report Type: Spontaneous
  Country: US (occurrence: US)
  Receive Date: 20140605
  Receipt Date: 20140807
  Transmission Date: 20150326
  Serious: No
  Sender: FDA-Public Use
  Company Number: US-PFIZER INC-2014151575

PATIENT
  Age: 73 Year
  Sex: Female
  Weight: 83.9 kg

DRUGS (1)
  1. LYRICA [Suspect]
     Active Substance: PREGABALIN
     Indication: DIABETIC NEUROPATHY
     Dosage: 100 MG, 3X/DAY

REACTIONS (6)
  - Pain [Unknown]
  - Malaise [Recovered/Resolved]
  - Neuropathy peripheral [Unknown]
  - Expired product administered [Unknown]
  - Neuralgia [Unknown]
  - Gastroenteritis viral [Recovered/Resolved]

NARRATIVE: CASE EVENT DATE: 20140514
